FAERS Safety Report 5124482-5 (Version None)
Quarter: 2006Q4

REPORT INFORMATION
  Report Type: 
  Country: None (occurrence: None)
  Receive Date: 20061006
  Receipt Date: 20060925
  Transmission Date: 20070319
  Serious: Yes (Hospitalization)
  Sender: FDA-Public Use
  Company Number: B0439347A

PATIENT
  Sex: Male
  Weight: 3.402 kg

DRUGS (5)
  1. PAXIL [Suspect]
     Dosage: TRANSPLACENTARY
     Route: 064
     Dates: end: 20060704
  2. METHOTRIMEPRAZINE (METHOTRIMEPRAZINE) [Suspect]
     Dosage: TRANSPLACENTARY
     Route: 064
     Dates: end: 20060704
  3. OXAZEPAM [Suspect]
     Dosage: TRANSPLACENTARY
     Route: 064
     Dates: start: 20060704
  4. ZOLPIDEM TARTRATE [Suspect]
     Dosage: TRANSPLACENTARY
     Route: 064
     Dates: end: 20060704
  5. OLANZAPINE [Suspect]
     Dosage: TRANSPLACENTARY
     Route: 064
     Dates: end: 20060704

REACTIONS (9)
  - BRADYCARDIA NEONATAL [None]
  - BRADYPNOEA [None]
  - CAESAREAN SECTION [None]
  - CYANOSIS NEONATAL [None]
  - DRUG EXPOSURE DURING PREGNANCY [None]
  - HYPOVENTILATION NEONATAL [None]
  - MOANING [None]
  - NEONATAL RESPIRATORY DISTRESS SYNDROME [None]
  - SOMNOLENCE NEONATAL [None]
